FAERS Safety Report 12053782 (Version 2)
Quarter: 2016Q3

REPORT INFORMATION
  Report Type: Spontaneous
  Country: US (occurrence: US)
  Receive Date: 20160209
  Receipt Date: 20160809
  Transmission Date: 20161109
  Serious: No
  Sender: FDA-Public Use
  Company Number: US-SA-2015SA175257

PATIENT
  Age: 82 Year
  Sex: Female
  Weight: 86.18 kg

DRUGS (10)
  1. PRALUENT [Suspect]
     Active Substance: ALIROCUMAB
     Indication: BLOOD CHOLESTEROL INCREASED
     Route: 065
     Dates: start: 20150904, end: 20150904
  2. ALIROCUMAB PREFILLED PEN [Concomitant]
     Active Substance: ALIROCUMAB
     Indication: BLOOD CHOLESTEROL INCREASED
     Dates: start: 20150916
  3. PRALUENT [Suspect]
     Active Substance: ALIROCUMAB
     Indication: BLOOD TRIGLYCERIDES INCREASED
     Route: 065
     Dates: start: 20150916
  4. PRALUENT [Suspect]
     Active Substance: ALIROCUMAB
     Indication: BLOOD CHOLESTEROL INCREASED
     Route: 065
     Dates: start: 20150916
  5. PRALUENT [Suspect]
     Active Substance: ALIROCUMAB
     Indication: BLOOD TRIGLYCERIDES INCREASED
     Route: 065
     Dates: start: 201507
  6. PRALUENT [Suspect]
     Active Substance: ALIROCUMAB
     Indication: BLOOD CHOLESTEROL INCREASED
     Route: 065
     Dates: start: 201507
  7. PRALUENT [Suspect]
     Active Substance: ALIROCUMAB
     Indication: BLOOD TRIGLYCERIDES INCREASED
     Route: 065
     Dates: start: 20150904, end: 20150904
  8. ALIROCUMAB PREFILLED PEN [Concomitant]
     Active Substance: ALIROCUMAB
     Indication: BLOOD CHOLESTEROL INCREASED
     Dates: start: 20150904, end: 20150904
  9. ALIROCUMAB PREFILLED PEN [Concomitant]
     Active Substance: ALIROCUMAB
     Indication: BLOOD TRIGLYCERIDES INCREASED
     Dates: start: 20150904, end: 20150904
  10. ALIROCUMAB PREFILLED PEN [Concomitant]
     Active Substance: ALIROCUMAB
     Indication: BLOOD TRIGLYCERIDES INCREASED
     Dates: start: 20150916

REACTIONS (1)
  - Therapeutic response decreased [Unknown]

NARRATIVE: CASE EVENT DATE: 20151028
